FAERS Safety Report 13688754 (Version 2)
Quarter: 2017Q3

REPORT INFORMATION
  Report Type: Report from Study
  Country: US (occurrence: BR)
  Receive Date: 20170626
  Receipt Date: 20170828
  Transmission Date: 20171127
  Serious: Yes (Death, Hospitalization)
  Sender: FDA-Public Use
  Company Number: US-SUNOVION-2017SUN002609

PATIENT
  Sex: Female

DRUGS (1)
  1. GLYCOPYRROLATE. [Suspect]
     Active Substance: GLYCOPYRROLATE
     Indication: PRODUCT USED FOR UNKNOWN INDICATION
     Dosage: .05 MG, UNK
     Route: 045
     Dates: start: 201606, end: 20170517

REACTIONS (6)
  - Chronic obstructive pulmonary disease [Fatal]
  - Poor peripheral circulation [Unknown]
  - Gallbladder necrosis [Fatal]
  - Metabolic disorder [Fatal]
  - Septic shock [Fatal]
  - Gastrointestinal necrosis [Fatal]
